FAERS Safety Report 21012316 (Version 5)
Quarter: 2022Q3

REPORT INFORMATION
  Report Type: Report from Study
  Country: US (occurrence: US)
  Receive Date: 20220627
  Receipt Date: 20220913
  Transmission Date: 20221026
  Serious: Yes (Other)
  Sender: FDA-Public Use
  Company Number: US-NOVARTISPH-NVSC2022US146237

PATIENT
  Sex: Female

DRUGS (1)
  1. KESIMPTA [Suspect]
     Active Substance: OFATUMUMAB
     Indication: Product used for unknown indication
     Dosage: UNK
     Route: 065

REACTIONS (10)
  - Choking [Unknown]
  - Diverticulitis [Unknown]
  - Influenza like illness [Unknown]
  - Memory impairment [Unknown]
  - Emotional disorder [Unknown]
  - Tinnitus [Unknown]
  - Fall [Unknown]
  - Fatigue [Unknown]
  - Irritable bowel syndrome [Unknown]
  - Constipation [Unknown]
